FAERS Safety Report 11862080 (Version 1)
Quarter: 2015Q4

REPORT INFORMATION
  Report Type: Report from Study
  Country: US (occurrence: US)
  Receive Date: 20151222
  Receipt Date: 20151222
  Transmission Date: 20160305
  Serious: Yes (Other)
  Sender: FDA-Public Use
  Company Number: US-GILEAD-2015-0188513

PATIENT
  Age: 53 Year
  Sex: Male

DRUGS (1)
  1. LEDIPASVIR/SOFOSBUVIR [Suspect]
     Active Substance: LEDIPASVIR\SOFOSBUVIR
     Indication: CHRONIC HEPATITIS C
     Dosage: 1 DF, UNK
     Route: 048
     Dates: start: 20151120

REACTIONS (9)
  - Dizziness [Not Recovered/Not Resolved]
  - Vomiting [Unknown]
  - Dysarthria [Unknown]
  - Asthenia [Unknown]
  - Syncope [Unknown]
  - Dizziness [Unknown]
  - Headache [Unknown]
  - Ear pain [Unknown]
  - Cold sweat [Unknown]

NARRATIVE: CASE EVENT DATE: 20151121
